FAERS Safety Report 7090755-2 (Version None)
Quarter: 2010Q4

REPORT INFORMATION
  Report Type: 
  Country: None (occurrence: None)
  Receive Date: 20101012
  Receipt Date: 20100720
  Transmission Date: 20110411
  Serious: No
  Sender: FDA-Public Use
  Company Number: US-001233

PATIENT
  Age: 30 Year
  Sex: Male

DRUGS (3)
  1. KUVAN [Suspect]
     Indication: PHENYLKETONURIA
     Dosage: 1200 MG QD ORAL, 800 MG QD ORAL
     Route: 048
     Dates: start: 20100626, end: 20100722
  2. KUVAN [Suspect]
     Indication: PHENYLKETONURIA
     Dosage: 1200 MG QD ORAL, 800 MG QD ORAL
     Route: 048
     Dates: start: 20100722
  3. PHENYLALANINE [Concomitant]

REACTIONS (1)
  - AMINO ACID LEVEL DECREASED [None]
